FAERS Safety Report 6826584-1 (Version None)
Quarter: 2010Q3

REPORT INFORMATION
  Report Type: 
  Country: None (occurrence: None)
  Receive Date: 20100709
  Receipt Date: 20100706
  Transmission Date: 20110219
  Serious: Yes (Hospitalization)
  Sender: FDA-Public Use
  Company Number: US-ELI_LILLY_AND_COMPANY-US201007001045

PATIENT
  Sex: Female

DRUGS (3)
  1. HUMALOG [Suspect]
     Indication: DIABETES MELLITUS
     Dosage: 20 U, EACH MORNING
  2. HUMALOG [Suspect]
     Dosage: 20 U, UNK
  3. HUMALOG [Suspect]
     Dosage: 20 U, EACH EVENING

REACTIONS (2)
  - HAEMATEMESIS [None]
  - NO ADVERSE EVENT [None]
